FAERS Safety Report 12410132 (Version 3)
Quarter: 2017Q3

REPORT INFORMATION
  Report Type: Spontaneous
  Country: US (occurrence: US)
  Receive Date: 20160527
  Receipt Date: 20170919
  Transmission Date: 20171127
  Serious: No
  Sender: FDA-Public Use
  Company Number: PHEH2016US013210

PATIENT
  Age: 36 Year
  Sex: Female

DRUGS (1)
  1. GILENYA [Suspect]
     Active Substance: FINGOLIMOD HYDROCHLORIDE
     Indication: RELAPSING-REMITTING MULTIPLE SCLEROSIS
     Dosage: 0.5 MG, QD
     Route: 048
     Dates: start: 20120412, end: 201503

REACTIONS (3)
  - Normal newborn [Unknown]
  - Maternal exposure before pregnancy [Unknown]
  - Delivery [Unknown]

NARRATIVE: CASE EVENT DATE: 201605
